FAERS Safety Report 19035765 (Version 1)
Quarter: 2021Q1

REPORT INFORMATION
  Report Type: Spontaneous
  Country: JP (occurrence: JP)
  Receive Date: 20210320
  Receipt Date: 20210320
  Transmission Date: 20210420
  Serious: No
  Sender: FDA-Public Use
  Company Number: JP-LUPIN PHARMACEUTICALS INC.-2021-03425

PATIENT
  Age: 28 Year
  Sex: Male

DRUGS (2)
  1. DICLOFENAC SODIUM. [Suspect]
     Active Substance: DICLOFENAC SODIUM
     Indication: MALE ORGASMIC DISORDER
     Dosage: 25 MILLIGRAM, BID
     Route: 065
  2. CELECOXIB. [Suspect]
     Active Substance: CELECOXIB
     Indication: MALE ORGASMIC DISORDER
     Dosage: 100 MILLIGRAM, QD
     Route: 048

REACTIONS (1)
  - Off label use [Unknown]
